FAERS Safety Report 7257586-1 (Version None)
Quarter: 2011Q1

REPORT INFORMATION
  Report Type: 
  Country: None (occurrence: None)
  Receive Date: 20110129
  Receipt Date: 20100607
  Transmission Date: 20110831
  Serious: No
  Sender: FDA-Public Use
  Company Number: US-ABBOTT-10P-163-0649272-00

PATIENT
  Age: 40 Year
  Sex: Male

DRUGS (2)
  1. LOTREL [Concomitant]
     Indication: PRODUCT USED FOR UNKNOWN INDICATION
     Dosage: 5-20MG
  2. HUMIRA [Suspect]
     Indication: RHEUMATOID ARTHRITIS
     Dates: start: 20100112

REACTIONS (4)
  - INJECTION SITE ERYTHEMA [None]
  - PAIN [None]
  - INJECTION SITE SWELLING [None]
  - INJECTION SITE PAIN [None]
